FAERS Safety Report 13245601 (Version 9)
Quarter: 2017Q3

REPORT INFORMATION
  Report Type: Spontaneous
  Country: KR (occurrence: KR)
  Receive Date: 20170217
  Receipt Date: 20170913
  Transmission Date: 20171127
  Serious: Yes (Hospitalization, Other)
  Sender: FDA-Public Use
  Company Number: KR-009507513-1702KOR001333

PATIENT
  Age: 68 Year
  Sex: Male
  Weight: 65.2 kg

DRUGS (28)
  1. MYPOL [Concomitant]
     Indication: PROCEDURAL PAIN
     Dosage: 1 CAPSULE, TID
     Route: 048
     Dates: start: 20161227, end: 20170106
  2. CODENAL (CHLORPHENIRAMINE MALEATE (+) DIHYDROCODEINE BITARTRATE (+) GU [Concomitant]
     Indication: COUGH
     Dosage: 1 TABLET, TID
     Route: 048
     Dates: start: 20170109, end: 20170126
  3. CISPLAN [Concomitant]
     Active Substance: CISPLATIN
     Indication: CHEMOTHERAPY
     Dosage: 85 MG, ONCE (CYCLE 1)
     Route: 042
     Dates: start: 20170119, end: 20170119
  4. CISPLAN [Concomitant]
     Active Substance: CISPLATIN
     Dosage: 85 MG, ONCE (CYCLE 2)
     Route: 042
     Dates: start: 20170227, end: 20170227
  5. ALOXI [Concomitant]
     Active Substance: PALONOSETRON HYDROCHLORIDE
     Indication: PROPHYLAXIS OF NAUSEA AND VOMITING
     Dosage: 0.25 MG, ONCE
     Route: 042
     Dates: start: 20170119, end: 20170119
  6. MAGO [Concomitant]
     Dosage: 1 CAPSULE, TID
     Route: 048
     Dates: start: 20170125, end: 20170201
  7. MANNITOL. [Concomitant]
     Active Substance: MANNITOL
     Indication: DRUG TOXICITY PROPHYLAXIS
     Dosage: 90 ML, ONCE
     Route: 042
     Dates: start: 20170119, end: 20170119
  8. MOTILITONE [Concomitant]
     Active Substance: HERBALS
     Indication: GASTRITIS
     Dosage: 1 TABLET, TID
     Route: 048
     Dates: start: 20161227, end: 20170106
  9. MUCOPECT [Concomitant]
     Indication: RECTAL DISCHARGE
     Dosage: 1 TABLET, TID
     Route: 048
     Dates: start: 20161228, end: 20170106
  10. LEGALON [Concomitant]
     Active Substance: MILK THISTLE
     Indication: HEPATITIS B
     Dosage: 1 CAPSULE, BID
     Route: 048
     Dates: start: 20161225, end: 20170109
  11. COUGH SYRUP (AMMONIUM CHLORIDE (+) CHLORPHENIRAMINE MALEATE (+) DIHYDR [Concomitant]
     Indication: COUGH
     Dosage: 20 ML, BID
     Route: 048
     Dates: start: 20170105, end: 20170109
  12. ETOPOSIDE. [Concomitant]
     Active Substance: ETOPOSIDE
     Dosage: 120 MG, QD (CYCLE 2)
     Route: 042
     Dates: start: 20170227, end: 20170301
  13. DEX (DEXAMETHASONE SODIUM PHOSPHATE) [Concomitant]
     Dosage: 8 MG, QD
     Route: 042
     Dates: start: 20170228, end: 20170302
  14. MACPERAN [Concomitant]
     Active Substance: METOCLOPRAMIDE HYDROCHLORIDE
     Indication: PROPHYLAXIS OF NAUSEA AND VOMITING
     Dosage: 10 MG, TID
     Route: 042
     Dates: start: 20170120, end: 20170121
  15. EMEND (FOSAPREPITANT DIMEGLUMINE) [Suspect]
     Active Substance: FOSAPREPITANT DIMEGLUMINE
     Indication: PROPHYLAXIS OF NAUSEA AND VOMITING
     Dosage: 150 MG, ONCE
     Route: 042
     Dates: start: 20170119, end: 20170119
  16. EMEND (FOSAPREPITANT DIMEGLUMINE) [Suspect]
     Active Substance: FOSAPREPITANT DIMEGLUMINE
     Dosage: 150 MG, ONCE
     Route: 042
     Dates: start: 20170227, end: 20170227
  17. ETOPOSIDE. [Concomitant]
     Active Substance: ETOPOSIDE
     Indication: CHEMOTHERAPY
     Dosage: 140 MG, QD (CYCLE 1)
     Route: 042
     Dates: start: 20170119, end: 20170121
  18. DEX (DEXAMETHASONE SODIUM PHOSPHATE) [Concomitant]
     Dosage: 8 MG, QD
     Route: 042
     Dates: start: 20170120, end: 20170121
  19. DEX (DEXAMETHASONE SODIUM PHOSPHATE) [Concomitant]
     Dosage: 12 MG, ONCE
     Route: 042
     Dates: start: 20170227, end: 20170227
  20. ALOXI [Concomitant]
     Active Substance: PALONOSETRON HYDROCHLORIDE
     Dosage: 0.25 MG, ONCE
     Route: 042
     Dates: start: 20170227, end: 20170227
  21. ESOMEPRAZOLE MAGNESIUM. [Concomitant]
     Active Substance: ESOMEPRAZOLE MAGNESIUM
     Indication: GASTRITIS
     Dosage: 1 TABLET, QD
     Route: 048
     Dates: start: 20161227, end: 20170109
  22. MAGO [Concomitant]
     Indication: CONSTIPATION PROPHYLAXIS
     Dosage: 1 CAPSULE, TID
     Route: 048
     Dates: start: 20161227, end: 20170106
  23. ALLEGRA-D [Concomitant]
     Active Substance: FEXOFENADINE\PSEUDOEPHEDRINE
     Dosage: 1 TABLET, BID
     Route: 048
     Dates: start: 20170125, end: 20170201
  24. LANSTON [Concomitant]
     Active Substance: LANSOPRAZOLE
     Indication: PROPHYLAXIS
     Dosage: 1 TABLET, QD
     Route: 048
     Dates: start: 20170119, end: 20170201
  25. DEX (DEXAMETHASONE SODIUM PHOSPHATE) [Concomitant]
     Indication: PROPHYLAXIS OF NAUSEA AND VOMITING
     Dosage: 12 MG, ONCE
     Route: 042
     Dates: start: 20170119, end: 20170119
  26. AIRTAL [Concomitant]
     Active Substance: ACECLOFENAC
     Indication: PROCEDURAL PAIN
     Dosage: 1 TABLET, BID
     Route: 048
     Dates: start: 20170109, end: 20170130
  27. RANITIDINE HYDROCHLORIDE (+) SUCRALFATE (+) TRIPOTASSIUM DICITRATOBISM [Concomitant]
     Indication: GASTRITIS
     Dosage: 1 TABLET, BID
     Route: 048
     Dates: start: 20170109, end: 20170130
  28. SURFOLASE [Concomitant]
     Indication: COUGH
     Dosage: 1 CAPSULE, BID
     Route: 048
     Dates: start: 20170109, end: 20170126

REACTIONS (15)
  - Hypophosphataemia [Recovered/Resolved]
  - Oesophageal varices haemorrhage [Recovered/Resolved]
  - Headache [Recovered/Resolved]
  - Dyspnoea [Recovered/Resolved]
  - Neutropenia [Recovered/Resolved]
  - Neutropenia [Recovered/Resolved]
  - Nausea [Recovered/Resolved]
  - Oropharyngeal candidiasis [Recovered/Resolved]
  - Diabetes mellitus [Not Recovered/Not Resolved]
  - Pain in extremity [Recovered/Resolved]
  - Febrile neutropenia [Recovered/Resolved]
  - Hypotension [Recovered/Resolved]
  - Pyrexia [Recovered/Resolved]
  - Constipation [Recovered/Resolved]
  - Pneumonia [Recovered/Resolved]

NARRATIVE: CASE EVENT DATE: 20170120
